FAERS Safety Report 16822286 (Version 1)
Quarter: 2019Q4

REPORT INFORMATION
  Report Type: Spontaneous
  Country: US (occurrence: US)
  Receive Date: 20190918
  Receipt Date: 20190918
  Transmission Date: 20200122
  Serious: Yes (Hospitalization)
  Sender: FDA-Public Use
  Company Number: None

PATIENT
  Sex: Male

DRUGS (1)
  1. JADENU [Suspect]
     Active Substance: DEFERASIROX
     Route: 048
     Dates: start: 20190809

REACTIONS (2)
  - Therapy cessation [None]
  - Sickle cell anaemia [None]
